FAERS Safety Report 21737258 (Version 1)
Quarter: 2022Q4

REPORT INFORMATION
  Report Type: Spontaneous
  Country: US (occurrence: US)
  Receive Date: 20221216
  Receipt Date: 20221216
  Transmission Date: 20230113
  Serious: No
  Sender: FDA-Public Use
  Company Number: US-GLAXOSMITHKLINE-US2022AMR185056

PATIENT
  Sex: Female

DRUGS (3)
  1. ZEJULA [Suspect]
     Active Substance: NIRAPARIB
     Indication: Ovarian cancer
     Dosage: 300 MG, QD
     Dates: start: 20211229
  2. ZIRABEV [Suspect]
     Active Substance: BEVACIZUMAB-BVZR
     Indication: Product used for unknown indication
     Dosage: UNK
     Route: 042
     Dates: start: 20221202
  3. SODIUM CHLORIDE [Concomitant]
     Active Substance: SODIUM CHLORIDE
     Indication: Product used for unknown indication
     Dosage: UNK
     Dates: start: 20221202

REACTIONS (3)
  - Diarrhoea [Unknown]
  - Blood pressure increased [Not Recovered/Not Resolved]
  - Muscle spasms [Unknown]
